FAERS Safety Report 7061784-X (Version None)
Quarter: 2010Q4

REPORT INFORMATION
  Report Type: 
  Country: None (occurrence: None)
  Receive Date: 20101026
  Receipt Date: 20101008
  Transmission Date: 20110411
  Serious: Yes (Death)
  Sender: FDA-Public Use
  Company Number: JP-AMGEN-JPNCT2010001081

PATIENT

DRUGS (13)
  1. PANITUMUMAB [Suspect]
     Indication: COLORECTAL CANCER
     Dosage: 6 MG/KG, Q2WK
     Route: 041
     Dates: start: 20100810, end: 20100810
  2. ZOFRAN [Concomitant]
     Dosage: UNK
     Route: 048
  3. OXYCONTIN [Concomitant]
     Dosage: UNK
     Route: 048
  4. SEROTONE [Concomitant]
     Dosage: UNK
     Route: 042
  5. KENALOG [Concomitant]
     Dosage: UNK
     Route: 048
  6. SOLU-CORTEF [Concomitant]
     Dosage: UNK
     Route: 042
  7. MAGLAX [Concomitant]
     Dosage: UNK
     Route: 048
  8. LOXONIN TAPE [Concomitant]
     Dosage: UNK
     Route: 062
  9. CORTICOSTEROIDS [Concomitant]
     Indication: PROPHYLAXIS
     Dosage: UNK
     Route: 065
  10. IRINOTECAN HYDROCHLORIDE [Concomitant]
     Indication: COLORECTAL CANCER
     Route: 041
     Dates: start: 20100810, end: 20100810
  11. FLUOROURACIL [Concomitant]
     Indication: COLORECTAL CANCER
     Dosage: UNK UNK, Q2WK
     Route: 040
     Dates: start: 20100810, end: 20100810
  12. FLUOROURACIL [Concomitant]
     Route: 041
     Dates: start: 20100810, end: 20100810
  13. CALCIUM LEVOFOLINATE [Concomitant]
     Indication: COLORECTAL CANCER
     Route: 041
     Dates: start: 20100810, end: 20100810

REACTIONS (1)
  - COLORECTAL CANCER [None]
